FAERS Safety Report 5492171-3 (Version None)
Quarter: 2007Q4

REPORT INFORMATION
  Report Type: 
  Country: None (occurrence: None)
  Receive Date: 20071015
  Receipt Date: 20070620
  Transmission Date: 20080405
  Serious: No
  Sender: FDA-Public Use
  Company Number: 2007SP002389

PATIENT
  Age: 17 Year
  Sex: Female
  Weight: 45.3597 kg

DRUGS (4)
  1. LUNESTA [Suspect]
     Indication: INSOMNIA
     Dosage: 2 MG;HS;ORAL; 6 MG;HS;ORAL
     Route: 048
     Dates: start: 20051101, end: 20060901
  2. LUNESTA [Suspect]
     Indication: INSOMNIA
     Dosage: 2 MG;HS;ORAL; 6 MG;HS;ORAL
     Route: 048
     Dates: start: 20060901
  3. PROZAC [Concomitant]
  4. CYCLESSA [Concomitant]

REACTIONS (1)
  - INITIAL INSOMNIA [None]
